FAERS Safety Report 5869442-1 (Version None)
Quarter: 2008Q3

REPORT INFORMATION
  Report Type: 
  Country: None (occurrence: None)
  Receive Date: 20080829
  Receipt Date: 20080819
  Transmission Date: 20090109
  Serious: Yes (Hospitalization)
  Sender: FDA-Public Use
  Company Number: 2008BI018634

PATIENT
  Sex: Female

DRUGS (1)
  1. TYSABRI [Suspect]
     Indication: MULTIPLE SCLEROSIS
     Dosage: 300 MG;QM;IV
     Route: 042
     Dates: start: 20071116

REACTIONS (7)
  - CELLULITIS [None]
  - CONDITION AGGRAVATED [None]
  - DISEASE PROGRESSION [None]
  - MULTIPLE SCLEROSIS [None]
  - MYELOPATHY [None]
  - OEDEMA PERIPHERAL [None]
  - PARAPLEGIA [None]
